FAERS Safety Report 8286807 (Version 3)
Quarter: 2012Q4

REPORT INFORMATION
  Report Type: 
  Country: US (occurrence: US)
  Receive Date: 20111213
  Receipt Date: 20120905
  Transmission Date: 20130627
  Serious: No
  Sender: FDA-Public Use
  Company Number: US-BAYER-2011-119034

PATIENT
  Age: 22 Year
  Sex: Male
  Weight: 95.24 kg

DRUGS (3)
  1. GADAVIST [Suspect]
     Indication: NUCLEAR MAGNETIC RESONANCE IMAGING BRAIN
     Dosage: 30 ml, ONCE
  2. BROMOCRIPTINE [Concomitant]
     Dosage: 2 tabs, twice weekly
  3. ANDROGEL [Concomitant]
     Dosage: one daily

REACTIONS (2)
  - Urticaria [Recovered/Resolved]
  - Rash [None]
